FAERS Safety Report 17112278 (Version 1)
Quarter: 2019Q4

REPORT INFORMATION
  Report Type: Spontaneous
  Country: US (occurrence: US)
  Receive Date: 20191204
  Receipt Date: 20191204
  Transmission Date: 20200122
  Serious: No
  Sender: FDA-Public Use
  Company Number: US-SHIRE-US201941236

PATIENT
  Sex: Female

DRUGS (2)
  1. HUMANA [Concomitant]
     Indication: PRODUCT USED FOR UNKNOWN INDICATION
  2. LIALDA [Suspect]
     Active Substance: MESALAMINE
     Indication: COLITIS ULCERATIVE
     Dosage: 1.2 GRAM, 4X/DAY:QID
     Route: 065
     Dates: start: 2009, end: 20191022

REACTIONS (4)
  - Treatment noncompliance [Unknown]
  - Fear [Unknown]
  - Stress [Unknown]
  - Inability to afford medication [Unknown]
